FAERS Safety Report 7503249-4 (Version None)
Quarter: 2011Q2

REPORT INFORMATION
  Report Type: 
  Country: None (occurrence: None)
  Receive Date: 20110525
  Receipt Date: 20100706
  Transmission Date: 20111010
  Serious: No
  Sender: FDA-Public Use
  Company Number: A0868675A

PATIENT
  Age: 81 Year
  Sex: Female

DRUGS (6)
  1. BACTROBAN [Suspect]
     Dosage: 1APP TWICE PER DAY
     Route: 045
     Dates: start: 20100703, end: 20100703
  2. NORVASC [Concomitant]
  3. ZOCOR [Concomitant]
  4. AVALIDE [Concomitant]
  5. PREDNISONE [Concomitant]
  6. ASPIRIN [Concomitant]

REACTIONS (2)
  - HEADACHE [None]
  - FEELING ABNORMAL [None]
